FAERS Safety Report 13708563 (Version 3)
Quarter: 2017Q3

REPORT INFORMATION
  Report Type: Spontaneous
  Country: AU (occurrence: AU)
  Receive Date: 20170630
  Receipt Date: 20170724
  Transmission Date: 20171127
  Serious: Yes (Other)
  Sender: FDA-Public Use
  Company Number: PHHY2017AU090378

PATIENT
  Sex: Female

DRUGS (3)
  1. ANASTROZOLE. [Suspect]
     Active Substance: ANASTROZOLE
     Indication: BREAST CANCER METASTATIC
     Route: 065
     Dates: end: 2010
  2. TAMOXIFEN [Suspect]
     Active Substance: TAMOXIFEN
     Indication: BREAST CANCER METASTATIC
     Route: 065
     Dates: end: 2010
  3. FEC [Suspect]
     Active Substance: CYCLOPHOSPHAMIDE\EPIRUBICIN HYDROCHLORIDE\FLUOROURACIL
     Indication: BREAST CANCER METASTATIC
     Dosage: 6X
     Route: 065
     Dates: start: 2003

REACTIONS (3)
  - Breast cancer metastatic [Unknown]
  - Metastases to pleura [Unknown]
  - Metastases to bone [Unknown]

NARRATIVE: CASE EVENT DATE: 2017
